FAERS Safety Report 7810722-8 (Version None)
Quarter: 2011Q4

REPORT INFORMATION
  Report Type: 
  Country: None (occurrence: None)
  Receive Date: 20111006
  Receipt Date: 20110926
  Transmission Date: 20120403
  Serious: Yes (Disabling)
  Sender: FDA-Public Use
  Company Number: 1062087

PATIENT
  Age: 69 Year
  Sex: Female

DRUGS (3)
  1. LIDOCAINE HCL [Suspect]
  2. BUPIVACAINE HCL [Suspect]
     Dosage: NOT REPORTED,  , OTHER
     Route: 050
  3. (SODIUM HYDROGEN CARBONATE) [Suspect]
     Dosage: NOT REPORTED,  , OTHER
     Route: 050

REACTIONS (4)
  - ANGLE CLOSURE GLAUCOMA [None]
  - CORNEAL DISORDER [None]
  - INCORRECT ROUTE OF DRUG ADMINISTRATION [None]
  - IRIS ADHESIONS [None]
